FAERS Safety Report 18652039 (Version 2)
Quarter: 2021Q1

REPORT INFORMATION
  Report Type: Spontaneous
  Country: FR (occurrence: FR)
  Receive Date: 20201223
  Receipt Date: 20210123
  Transmission Date: 20210419
  Serious: Yes (Other)
  Sender: FDA-Public Use
  Company Number: FR-LUPIN PHARMACEUTICALS INC.-2020-10706

PATIENT
  Age: 35 Year
  Sex: Female

DRUGS (10)
  1. LOVENOX [Suspect]
     Active Substance: ENOXAPARIN SODIUM
     Indication: DRUG THERAPY
     Dosage: 0.4 MILLILITER
     Route: 065
     Dates: start: 2019
  2. UTROGESTAN [Suspect]
     Active Substance: PROGESTERONE
     Indication: DRUG THERAPY
     Dosage: 800 MILLIGRAM, INTRAVAGINAL
     Route: 065
     Dates: start: 2019
  3. HYDROXYCHLOROQUINE [Suspect]
     Active Substance: HYDROXYCHLOROQUINE
     Indication: DRUG THERAPY
     Dosage: 400 MILLIGRAM
     Route: 065
     Dates: start: 2019, end: 2020
  4. PROVAMES [Suspect]
     Active Substance: ESTRADIOL
     Indication: DRUG THERAPY
     Dosage: 6 MILLIGRAM, QD,
     Route: 048
     Dates: start: 2020, end: 2020
  5. VIVELLE?DOT [Suspect]
     Active Substance: ESTRADIOL
     Indication: DRUG THERAPY
     Dosage: 100 MILLIGRAM, QOD, OESTROGENIC PATCHES [VIVELLEDOT] 100MG PER 2 DAYS
     Route: 061
     Dates: start: 2020
  6. NEUPOGEN [Suspect]
     Active Substance: FILGRASTIM
     Indication: DRUG THERAPY
     Dosage: 0.2 MILLILITER, QD
     Route: 065
     Dates: start: 2019
  7. ASPEGIC [ACETYLSALICYLIC ACID] [Suspect]
     Active Substance: ASPIRIN
     Indication: DRUG THERAPY
     Dosage: 100 MILLIGRAM
     Route: 065
     Dates: start: 2019
  8. PROVAMES [Suspect]
     Active Substance: ESTRADIOL
     Dosage: UNK, FORMULATION (ORAL) WAS CHANGED TO PATCH
     Route: 065
     Dates: start: 2020, end: 2020
  9. CORTANCYL [Suspect]
     Active Substance: PREDNISONE
     Dosage: 10 MILLIGRAM, QD
     Route: 065
     Dates: start: 2020
  10. CORTANCYL [Suspect]
     Active Substance: PREDNISONE
     Indication: DRUG THERAPY
     Dosage: 7.5 MILLIGRAM
     Route: 065
     Dates: start: 2019

REACTIONS (2)
  - Drug-induced liver injury [Recovered/Resolved]
  - Exposure during pregnancy [Unknown]

NARRATIVE: CASE EVENT DATE: 2020
